FAERS Safety Report 5533424-X (Version None)
Quarter: 2007Q4

REPORT INFORMATION
  Report Type: 
  Country: None (occurrence: None)
  Receive Date: 20071204
  Receipt Date: 20071126
  Transmission Date: 20080405
  Serious: Yes (Other)
  Sender: FDA-Public Use
  Company Number: GB-PFIZER INC-2007099838

PATIENT
  Sex: Female

DRUGS (6)
  1. CHAMPIX [Suspect]
     Indication: SMOKING CESSATION THERAPY
     Route: 048
  2. VENLAFAXINE HCL [Concomitant]
  3. RISPERIDONE [Concomitant]
  4. DIAZEPAM [Concomitant]
  5. NITRAZEPAM [Concomitant]
  6. TRAMADOL HCL [Concomitant]

REACTIONS (3)
  - DIZZINESS [None]
  - PARANOIA [None]
  - PSYCHOTIC DISORDER [None]
